FAERS Safety Report 9231059 (Version 2)
Quarter: 2013Q3

REPORT INFORMATION
  Report Type: Spontaneous
  Country: FR (occurrence: FR)
  Receive Date: 20130415
  Receipt Date: 20130919
  Transmission Date: 20140515
  Serious: Yes (Life-Threatening, Hospitalization, Other)
  Sender: FDA-Public Use
  Company Number: FR-JNJFOC-20130405544

PATIENT
  Sex: Male

DRUGS (7)
  1. XARELTO [Suspect]
     Indication: DEEP VEIN THROMBOSIS
     Route: 048
  2. XARELTO [Suspect]
     Indication: DEEP VEIN THROMBOSIS
     Route: 048
     Dates: start: 20130320
  3. XARELTO [Suspect]
     Indication: PULMONARY EMBOLISM
     Route: 048
     Dates: start: 20130320
  4. XARELTO [Suspect]
     Indication: PULMONARY EMBOLISM
     Route: 048
  5. METFORMINE [Concomitant]
     Route: 065
  6. AMAREL [Concomitant]
     Route: 065
  7. RAMIPRIL [Concomitant]
     Route: 065

REACTIONS (3)
  - Pulmonary embolism [Recovering/Resolving]
  - Deep vein thrombosis [Recovering/Resolving]
  - Drug ineffective [Unknown]
